FAERS Safety Report 21139136 (Version 2)
Quarter: 2023Q1

REPORT INFORMATION
  Report Type: Report from Study
  Country: DE (occurrence: DE)
  Receive Date: 20220727
  Receipt Date: 20230228
  Transmission Date: 20230417
  Serious: Yes (Hospitalization)
  Sender: FDA-Public Use
  Company Number: DE-AMGEN-DEUNI2022118160

PATIENT
  Age: 42 Year
  Sex: Female

DRUGS (2)
  1. ADALIMUMAB [Suspect]
     Active Substance: ADALIMUMAB
     Indication: Rheumatoid arthritis
     Dosage: 40 MILLIGRAM (DOSAGE1), 40 MILLIGRAM
     Route: 065
     Dates: end: 20220303
  2. METHOTREXATE SODIUM [Concomitant]
     Active Substance: METHOTREXATE SODIUM
     Dosage: 20 MILLIGRAM, QW (20 MILLIGRAM, QWK)
     Route: 065

REACTIONS (1)
  - Bladder neoplasm [Unknown]

NARRATIVE: CASE EVENT DATE: 20220324
